FAERS Safety Report 5300487-6 (Version None)
Quarter: 2007Q2

REPORT INFORMATION
  Report Type: 
  Country: None (occurrence: None)
  Receive Date: 20070418
  Receipt Date: 20070410
  Transmission Date: 20071010
  Serious: Yes (Death)
  Sender: FDA-Public Use
  Company Number: SE-GENENTECH-239100

PATIENT
  Age: 64 Year
  Sex: Female

DRUGS (1)
  1. MABTHERA [Suspect]
     Indication: ARTHRITIS
     Dosage: 2 TIMES, 2 WEEKS APART
     Dates: start: 20060913, end: 20060927

REACTIONS (3)
  - ARTERIAL THROMBOSIS [None]
  - INTESTINAL GANGRENE [None]
  - SEPSIS [None]
